FAERS Safety Report 6056075-X (Version None)
Quarter: 2009Q1

REPORT INFORMATION
  Report Type: 
  Country: None (occurrence: None)
  Receive Date: 20090128
  Receipt Date: 20090126
  Transmission Date: 20090719
  Serious: Yes (Death)
  Sender: FDA-Public Use
  Company Number: US-GILEAD-2009-0020001

PATIENT
  Sex: Female
  Weight: 55.388 kg

DRUGS (12)
  1. LETAIRIS [Suspect]
     Indication: PULMONARY ARTERIAL HYPERTENSION
     Route: 048
     Dates: start: 20081031
  2. OXYGEN [Concomitant]
  3. XANAX [Concomitant]
  4. SYNTHROID [Concomitant]
  5. REVATIO [Concomitant]
  6. VITAMIN E [Concomitant]
  7. NOVOLIN [Concomitant]
  8. NEXIUM [Concomitant]
  9. ASPIRIN [Concomitant]
  10. METOPROLOL TARTRATE [Concomitant]
  11. PROGRAF [Concomitant]
  12. PROCRIT [Concomitant]

REACTIONS (1)
  - DEATH [None]
